FAERS Safety Report 11805168 (Version 2)
Quarter: 2015Q4

REPORT INFORMATION
  Report Type: Spontaneous
  Country: IT (occurrence: IT)
  Receive Date: 20151206
  Receipt Date: 20151207
  Transmission Date: 20160305
  Serious: Yes (Other)
  Sender: FDA-Public Use
  Company Number: IT-ASTRAZENECA-2015SF08204

PATIENT
  Sex: Female

DRUGS (1)
  1. LYNPARZA [Suspect]
     Active Substance: OLAPARIB
     Route: 048
     Dates: start: 20150914, end: 20151104

REACTIONS (4)
  - Abdominal pain upper [Unknown]
  - Ascites [Unknown]
  - Drug intolerance [Unknown]
  - Malignant neoplasm progression [Unknown]
